FAERS Safety Report 5354245-7 (Version None)
Quarter: 2007Q2

REPORT INFORMATION
  Report Type: 
  Country: None (occurrence: None)
  Receive Date: 20070612
  Receipt Date: 20070601
  Transmission Date: 20071010
  Serious: Yes (Hospitalization, Other)
  Sender: FDA-Public Use
  Company Number: US-ELI_LILLY_AND_COMPANY-US200706000285

PATIENT
  Age: 50 Year
  Sex: Male

DRUGS (7)
  1. HUMULIN N [Suspect]
     Indication: DIABETES MELLITUS
     Dosage: 20 U, DAILY (1/D)
     Dates: start: 19910101
  2. HUMULIN R [Suspect]
     Indication: DIABETES MELLITUS
     Dosage: 10 U, DAILY (1/D)
     Dates: start: 19910101
  3. LASIX [Concomitant]
  4. LIPITOR [Concomitant]
  5. COREG [Concomitant]
  6. ASPIRIN [Concomitant]
  7. NOVOLIN N [Concomitant]
     Indication: DIABETES MELLITUS

REACTIONS (13)
  - ABASIA [None]
  - AMNESIA [None]
  - BLOOD GLUCOSE INCREASED [None]
  - BRAIN OPERATION [None]
  - CEREBROVASCULAR ACCIDENT [None]
  - COMA [None]
  - DIABETIC COMPLICATION [None]
  - FATIGUE [None]
  - HEADACHE [None]
  - LETHARGY [None]
  - NICOTINE DEPENDENCE [None]
  - UNRESPONSIVE TO STIMULI [None]
  - WEIGHT DECREASED [None]
